FAERS Safety Report 5735797-1 (Version None)
Quarter: 2008Q2

REPORT INFORMATION
  Report Type: 
  Country: None (occurrence: None)
  Receive Date: 20080508
  Receipt Date: 20080508
  Transmission Date: 20081010
  Serious: No
  Sender: FDA-Public Use
  Company Number: None

PATIENT
  Sex: Female
  Weight: 65.7716 kg

DRUGS (1)
  1. PROHEALTH TOOTHPASTE CREST [Suspect]
     Dosage: TWICE PER DAY PO
     Route: 048
     Dates: start: 20071001, end: 20080201

REACTIONS (3)
  - JAW DISORDER [None]
  - LIP DISORDER [None]
  - TOOTH DISCOLOURATION [None]
